FAERS Safety Report 16006400 (Version 1)
Quarter: 2019Q1

REPORT INFORMATION
  Report Type: Spontaneous
  Country: US (occurrence: US)
  Receive Date: 20190226
  Receipt Date: 20190226
  Transmission Date: 20190418
  Serious: No
  Sender: FDA-Public Use
  Company Number: US-FERRINGPH-2018FE00183

PATIENT
  Age: 52 Year
  Sex: Male
  Weight: 102.4 kg

DRUGS (1)
  1. DDAVP [Suspect]
     Active Substance: DESMOPRESSIN ACETATE
     Indication: NEUROGENIC BLADDER
     Dosage: 1 SPRAY IN EACH NOSTRIL IN THE AM AND AT NIGHT
     Route: 045
     Dates: start: 1992

REACTIONS (6)
  - Malaise [Recovered/Resolved]
  - Off label use [Unknown]
  - Nausea [Recovered/Resolved]
  - Foreign body in respiratory tract [Recovered/Resolved]
  - Product use in unapproved indication [Unknown]
  - Dizziness [Recovered/Resolved]

NARRATIVE: CASE EVENT DATE: 1992
